FAERS Safety Report 17588598 (Version 1)
Quarter: 2020Q1

REPORT INFORMATION
  Report Type: Report from Study
  Country: IN (occurrence: IN)
  Receive Date: 20200326
  Receipt Date: 20200326
  Transmission Date: 20200409
  Serious: Yes (Death)
  Sender: FDA-Public Use
  Company Number: IN-BAXTER-2020BAX005998

PATIENT
  Age: 68 Year
  Sex: Male

DRUGS (2)
  1. PERITONEAL DIALYSIS SOLUTION WITH 2.5% DEXTROSE [Suspect]
     Active Substance: CALCIUM CHLORIDE\DEXTROSE\MAGNESIUM CHLORIDE\SODIUM CHLORIDE\SODIUM LACTATE
     Indication: RENAL FAILURE
     Dosage: 1 BAG
     Route: 033
     Dates: end: 20200313
  2. EXTRANEAL [Suspect]
     Active Substance: CALCIUM CHLORIDE\ICODEXTRIN\MAGNESIUM CHLORIDE\SODIUM CHLORIDE\SODIUM LACTATE
     Indication: RENAL FAILURE
     Dosage: 1 BAG
     Route: 033
     Dates: end: 20200313

REACTIONS (2)
  - Death [Fatal]
  - Face oedema [Not Recovered/Not Resolved]

NARRATIVE: CASE EVENT DATE: 20200313
